FAERS Safety Report 12900216 (Version 1)
Quarter: 2016Q4

REPORT INFORMATION
  Report Type: Spontaneous
  Country: CA (occurrence: CA)
  Receive Date: 20161101
  Receipt Date: 20161101
  Transmission Date: 20170207
  Serious: Yes (Other)
  Sender: FDA-Public Use
  Company Number: CA-ACTELION-A-US2016-144692

PATIENT
  Age: 72 Year
  Sex: Female
  Weight: 54.42 kg

DRUGS (8)
  1. TRACLEER [Suspect]
     Active Substance: BOSENTAN
     Indication: PULMONARY HYPERTENSION
     Dosage: 2 DF, QD
     Route: 048
  2. VITAMIN B12 [Concomitant]
     Active Substance: CYANOCOBALAMIN
  3. VITAMIN D [Concomitant]
     Active Substance: CHOLECALCIFEROL
  4. TRACLEER [Suspect]
     Active Substance: BOSENTAN
     Dosage: 1 DF, QD
     Route: 048
  5. FUROSEMIDE. [Concomitant]
     Active Substance: FUROSEMIDE
  6. IRON [Concomitant]
     Active Substance: IRON
  7. COVERSYL [Concomitant]
     Active Substance: PERINDOPRIL
  8. PREVACID [Concomitant]
     Active Substance: LANSOPRAZOLE

REACTIONS (4)
  - Anaemia [Not Recovered/Not Resolved]
  - Transfusion [Not Recovered/Not Resolved]
  - Fluid retention [Not Recovered/Not Resolved]
  - Mineral supplementation [Not Recovered/Not Resolved]
